FAERS Safety Report 17950927 (Version 2)
Quarter: 2020Q3

REPORT INFORMATION
  Report Type: Report from Study
  Country: GB (occurrence: GB)
  Receive Date: 20200626
  Receipt Date: 20200702
  Transmission Date: 20201103
  Serious: Yes (Hospitalization, Other)
  Sender: FDA-Public Use
  Company Number: GB-GLAXOSMITHKLINE-GB2020EME037406

PATIENT
  Sex: Female

DRUGS (1)
  1. MEPOLIZUMAB [Suspect]
     Active Substance: MEPOLIZUMAB
     Indication: ASTHMA
     Dosage: 100 MG, Z,(MONTHLY)
     Route: 042

REACTIONS (8)
  - Pneumonia [Unknown]
  - Productive cough [Unknown]
  - Lower respiratory tract infection [Unknown]
  - Bronchiectasis [Unknown]
  - Cough [Recovered/Resolved]
  - Wheezing [Not Recovered/Not Resolved]
  - Exposure to fungus [Unknown]
  - Dyspnoea exertional [Not Recovered/Not Resolved]
